FAERS Safety Report 17004239 (Version 2)
Quarter: 2019Q4

REPORT INFORMATION
  Report Type: Spontaneous
  Country: GB (occurrence: GB)
  Receive Date: 20191107
  Receipt Date: 20191112
  Transmission Date: 20200122
  Serious: Yes (Other)
  Sender: FDA-Public Use
  Company Number: GB-IPSEN BIOPHARMACEUTICALS, INC.-2019-19975

PATIENT
  Age: 73 Year
  Sex: Female

DRUGS (2)
  1. AZZALURE [Suspect]
     Active Substance: BOTULINUM TOXIN TYPE A
     Indication: SKIN WRINKLING
     Dosage: 15 UNITS (10 UNITS MEDIALLY AND 5 UNITS AT THE EDGE OF THE CORRUGATOR)
     Route: 030
     Dates: start: 20190816, end: 20190816
  2. TEOSYL ULTRADEEP (HYALURONIC ACID) [Suspect]
     Active Substance: HYALURONIC ACID
     Indication: PRODUCT USED FOR UNKNOWN INDICATION

REACTIONS (6)
  - Muscle twitching [Unknown]
  - Headache [Unknown]
  - Cataract [Unknown]
  - Asthenopia [Unknown]
  - Eye haematoma [Unknown]
  - Vision blurred [Unknown]

NARRATIVE: CASE EVENT DATE: 2019
